FAERS Safety Report 5473111-X (Version None)
Quarter: 2007Q4

REPORT INFORMATION
  Report Type: 
  Country: None (occurrence: None)
  Receive Date: 20071001
  Receipt Date: 20070503
  Transmission Date: 20080405
  Serious: Yes (Other)
  Sender: FDA-Public Use
  Company Number: US-ASTRAZENECA-2007UW06111

PATIENT
  Age: 63 Year
  Sex: Female

DRUGS (4)
  1. ARIMIDEX [Suspect]
     Indication: BREAST CANCER FEMALE
     Route: 048
     Dates: start: 20050101, end: 20070101
  2. FOSAMAX-D [Concomitant]
  3. ARMOUR-THROID [Concomitant]
     Indication: THYROID DISORDER
  4. VITAMINS [Concomitant]

REACTIONS (3)
  - ARTHRALGIA [None]
  - OSTEOPOROSIS [None]
  - PAIN IN EXTREMITY [None]
